FAERS Safety Report 11061274 (Version 1)
Quarter: 2015Q2

REPORT INFORMATION
  Report Type: Report from Study
  Country: US (occurrence: US)
  Receive Date: 20150424
  Receipt Date: 20150424
  Transmission Date: 20150821
  Serious: Yes (Hospitalization, Other)
  Sender: FDA-Public Use
  Company Number: US-GILEAD-2015-0150325

PATIENT
  Age: 78 Year
  Sex: Male

DRUGS (12)
  1. FLONASE                            /00908302/ [Concomitant]
  2. FENOFIBRATE. [Concomitant]
     Active Substance: FENOFIBRATE
  3. LOVENOX [Concomitant]
     Active Substance: ENOXAPARIN SODIUM
  4. ADCIRCA [Suspect]
     Active Substance: TADALAFIL
     Indication: PRODUCT USED FOR UNKNOWN INDICATION
     Route: 065
  5. ASPIRIN                            /00002701/ [Concomitant]
     Active Substance: ASPIRIN
  6. ATORVASTATIN [Concomitant]
     Active Substance: ATORVASTATIN
  7. OMEPRAZOLE. [Concomitant]
     Active Substance: OMEPRAZOLE
  8. VICTOZA [Concomitant]
     Active Substance: LIRAGLUTIDE
  9. STARLIX [Concomitant]
     Active Substance: NATEGLINIDE
  10. AMBRISENTAN [Suspect]
     Active Substance: AMBRISENTAN
     Indication: PULMONARY ARTERIAL HYPERTENSION
     Dosage: 10 MG, QD
     Route: 065
     Dates: start: 20140605
  11. WARFARIN [Concomitant]
     Active Substance: WARFARIN
  12. SPIRONOLACTONE. [Concomitant]
     Active Substance: SPIRONOLACTONE

REACTIONS (1)
  - Pulmonary thrombosis [Not Recovered/Not Resolved]

NARRATIVE: CASE EVENT DATE: 20150418
